FAERS Safety Report 19424864 (Version 1)
Quarter: 2021Q2

REPORT INFORMATION
  Report Type: Spontaneous
  Country: JP (occurrence: JP)
  Receive Date: 20210617
  Receipt Date: 20210617
  Transmission Date: 20210717
  Serious: Yes (Other)
  Sender: FDA-Public Use
  Company Number: JP-ASTELLAS-2021JP007542

PATIENT
  Age: 89 Year
  Sex: Male

DRUGS (6)
  1. MUCOSOLVAN [Concomitant]
     Active Substance: AMBROXOL HYDROCHLORIDE
     Indication: BRONCHITIS CHRONIC
     Dosage: UNK UNK, UNKNOWN FREQ.
     Route: 048
  2. THYRADIN S [Concomitant]
     Active Substance: LEVOTHYROXINE SODIUM
     Indication: HYPOTHYROIDISM
     Dosage: 50 ?G/DAY, UNKNOWN FREQ.
     Route: 048
  3. EBRANTIL KAKEN [Concomitant]
     Indication: BENIGN PROSTATIC HYPERPLASIA
     Route: 048
     Dates: start: 20180601
  4. BETANIS [Suspect]
     Active Substance: MIRABEGRON
     Indication: HYPERTONIC BLADDER
     Dosage: 25 MG, ONCE DAILY, AT NIGHT
     Route: 048
     Dates: start: 20181217
  5. CLARITH [Concomitant]
     Active Substance: CLARITHROMYCIN
     Indication: BRONCHITIS CHRONIC
     Dosage: UNK UNK, UNKNOWN FREQ.
     Route: 048
  6. MICARDIS [Concomitant]
     Active Substance: TELMISARTAN
     Indication: HYPERTENSION
     Dosage: 40 MG/DAY, UNKNOWN FREQ.
     Route: 048

REACTIONS (2)
  - Prostate cancer [Not Recovered/Not Resolved]
  - Urinary retention [Recovered/Resolved]

NARRATIVE: CASE EVENT DATE: 20210416
